FAERS Safety Report 8951651 (Version 1)
Quarter: 2012Q4

REPORT INFORMATION
  Report Type: 
  Country: US (occurrence: US)
  Receive Date: 20121204
  Receipt Date: 20121204
  Transmission Date: 20130627
  Serious: Yes (Other)
  Sender: FDA-Public Use
  Company Number: CHPA2012US024175

PATIENT
  Age: 10 Year
  Sex: Male

DRUGS (1)
  1. TRIAMINIC [Suspect]
     Indication: PRODUCTIVE COUGH
     Dosage: 2 tsp, Unk
     Route: 048
     Dates: start: 20121119, end: 20121120

REACTIONS (2)
  - Blood glucose increased [Recovered/Resolved]
  - Concomitant disease aggravated [Recovered/Resolved]
